FAERS Safety Report 10414173 (Version 6)
Quarter: 2014Q4

REPORT INFORMATION
  Report Type: Spontaneous
  Country: US (occurrence: US)
  Receive Date: 20140827
  Receipt Date: 20141106
  Transmission Date: 20150528
  Serious: Yes (Hospitalization, Other)
  Sender: FDA-Public Use
  Company Number: US-ACTELION-A-US2014-103899

PATIENT
  Age: 57 Year
  Sex: Male

DRUGS (2)
  1. XARELTO [Concomitant]
     Active Substance: RIVAROXABAN
  2. VELETRI [Suspect]
     Active Substance: EPOPROSTENOL
     Indication: PULMONARY ARTERIAL HYPERTENSION
     Dosage: 19 NG/KG, PER MIN
     Route: 042
     Dates: start: 20140516

REACTIONS (15)
  - Diarrhoea [Unknown]
  - Blister [Unknown]
  - Catheter site swelling [Unknown]
  - Catheter site erythema [Unknown]
  - Catheter site pain [Unknown]
  - Tachycardia [Unknown]
  - Bacterial infection [Unknown]
  - Cough [Unknown]
  - Pyrexia [Unknown]
  - Pneumonia [Unknown]
  - Sepsis [Unknown]
  - Device related infection [Unknown]
  - Catheter placement [Unknown]
  - Chills [Unknown]
  - Pain in jaw [Unknown]

NARRATIVE: CASE EVENT DATE: 201408
